FAERS Safety Report 16532326 (Version 1)
Quarter: 2019Q3

REPORT INFORMATION
  Report Type: Spontaneous
  Country: US (occurrence: US)
  Receive Date: 20190703
  Receipt Date: 20190703
  Transmission Date: 20191004
  Serious: Yes (Hospitalization)
  Sender: FDA-Public Use
  Company Number: None

PATIENT
  Age: 55 Year
  Sex: Female

DRUGS (4)
  1. EFFEXOR XR, IBUPROFEN [Concomitant]
  2. TOPAMAX, VITAMIN D [Concomitant]
  3. HUMIRA [Suspect]
     Active Substance: ADALIMUMAB
     Indication: CROHN^S DISEASE
     Dosage: ?          OTHER FREQUENCY:WEEKLY;?
     Route: 058
     Dates: start: 20120313
  4. CALTRATE, CENTRUM [Concomitant]

REACTIONS (1)
  - Localised infection [None]

NARRATIVE: CASE EVENT DATE: 20190620
